FAERS Safety Report 10084410 (Version 1)
Quarter: 2014Q2

REPORT INFORMATION
  Report Type: Spontaneous
  Country: IT (occurrence: IT)
  Receive Date: 20140417
  Receipt Date: 20140417
  Transmission Date: 20141212
  Serious: Yes (Other)
  Sender: FDA-Public Use
  Company Number: IT-PFIZER INC-2014104635

PATIENT
  Age: 83 Year
  Sex: Female

DRUGS (3)
  1. CARDURA [Suspect]
     Indication: HYPERTENSION
     Dosage: 4 MG, SINGLE
     Route: 048
     Dates: start: 20140304, end: 20140304
  2. COMBISARTAN [Suspect]
     Indication: HYPERTENSION
     Dosage: 2 DF, TOTAL
     Route: 048
     Dates: start: 20140302, end: 20140302
  3. CARDIOASPIRIN [Concomitant]
     Dosage: 0.5 UNIT DOSE
     Route: 048

REACTIONS (6)
  - Syncope [Recovering/Resolving]
  - Hyponatraemia [Recovering/Resolving]
  - Orthostatic hypotension [Recovering/Resolving]
  - Dizziness [Recovering/Resolving]
  - Hyperhidrosis [Recovering/Resolving]
  - Vomiting [Recovering/Resolving]
